FAERS Safety Report 4742414-6 (Version None)
Quarter: 2005Q3

REPORT INFORMATION
  Report Type: 
  Country: None (occurrence: None)
  Receive Date: 20050808
  Receipt Date: 20050803
  Transmission Date: 20060218
  Serious: Yes (Death)
  Sender: FDA-Public Use
  Company Number: USA-2005-0020653

PATIENT
  Age: 49 Year
  Sex: Male

DRUGS (4)
  1. OXYCONTIN [Suspect]
     Indication: PAIN
     Dosage: 100 MG, Q12
     Dates: start: 20020501
  2. DARVOCET-N (DEXTROPROPXYPHENE NAPSILATE) [Concomitant]
  3. LEXAPRO [Concomitant]
  4. REMERON [Concomitant]

REACTIONS (2)
  - INCISIONAL HERNIA REPAIR [None]
  - POST PROCEDURAL COMPLICATION [None]
